FAERS Safety Report 7981288-7 (Version None)
Quarter: 2011Q4

REPORT INFORMATION
  Report Type: 
  Country: None (occurrence: None)
  Receive Date: 20111215
  Receipt Date: 20111213
  Transmission Date: 20120403
  Serious: No
  Sender: FDA-Public Use
  Company Number: US-PFIZER INC-2011303809

PATIENT
  Sex: Male
  Weight: 102 kg

DRUGS (2)
  1. AMITRIPTYLINE [Concomitant]
     Indication: NEURALGIA
     Dosage: 20 MG, 1X/DAY
     Route: 048
  2. LYRICA [Suspect]
     Indication: NEURALGIA
     Dosage: 50 MG, 3X/DAY
     Route: 048
     Dates: start: 20111201

REACTIONS (1)
  - WEIGHT INCREASED [None]
